FAERS Safety Report 14400912 (Version 1)
Quarter: 2018Q1

REPORT INFORMATION
  Report Type: Spontaneous
  Country: US (occurrence: US)
  Receive Date: 20180117
  Receipt Date: 20180117
  Transmission Date: 20180509
  Serious: Yes (Hospitalization, Other)
  Sender: FDA-Public Use
  Company Number: US-VISTAPHARM, INC.-VER201801-000115

PATIENT
  Age: 39 Year
  Sex: Male
  Weight: 69.01 kg

DRUGS (11)
  1. CLONAZEPAM. [Suspect]
     Active Substance: CLONAZEPAM
  2. BENZTROPINE. [Suspect]
     Active Substance: BENZTROPINE
     Indication: SCHIZOAFFECTIVE DISORDER
  3. VALPROIC ACID. [Suspect]
     Active Substance: VALPROIC ACID
     Indication: SCHIZOAFFECTIVE DISORDER
  4. CLONAZEPAM. [Suspect]
     Active Substance: CLONAZEPAM
     Indication: SCHIZOAFFECTIVE DISORDER
  5. VALPROIC ACID. [Suspect]
     Active Substance: VALPROIC ACID
     Dosage: 500 MG IN THE MORNING AND 750 MG AT NIGHT
  6. VALPROIC ACID. [Suspect]
     Active Substance: VALPROIC ACID
     Dosage: 1000 MG IN THE MORNING, 500 MG IN THE AFTERNOON, AND 1000 MG AT NIGHT
  7. FLUPHENAZINE [Suspect]
     Active Substance: FLUPHENAZINE
  8. FLUPHENAZINE [Suspect]
     Active Substance: FLUPHENAZINE
  9. LORAZEPAM. [Concomitant]
     Active Substance: LORAZEPAM
     Indication: SCHIZOAFFECTIVE DISORDER
  10. FLUPHENAZINE [Suspect]
     Active Substance: FLUPHENAZINE
     Indication: SCHIZOAFFECTIVE DISORDER
  11. VALPROIC ACID. [Suspect]
     Active Substance: VALPROIC ACID
     Dosage: 1000 MG IN THE MORNING AND 1000 MG AT NIGHT

REACTIONS (4)
  - Antipsychotic drug level [Unknown]
  - Agitation [Recovering/Resolving]
  - Drug interaction [Recovering/Resolving]
  - Paradoxical drug reaction [Recovering/Resolving]
